FAERS Safety Report 9457215 (Version 1)
Quarter: 2013Q3

REPORT INFORMATION
  Report Type: Spontaneous
  Country: US (occurrence: US)
  Receive Date: 20130814
  Receipt Date: 20130814
  Transmission Date: 20140515
  Serious: Yes (Other)
  Sender: FDA-Public Use
  Company Number: US-JNJFOC-20130718793

PATIENT
  Age: 76 Year
  Sex: Female
  Weight: 77.11 kg

DRUGS (3)
  1. NEOSPORIN PLUS PAIN RELIEF CREAM [Suspect]
     Indication: RASH
     Dosage: JUST A LITTLE BIT AND SPREAD IT
     Route: 061
  2. LYRICA [Concomitant]
     Indication: NEUROPATHY PERIPHERAL
     Route: 065
     Dates: start: 20130516
  3. ANTIHYPERTENSION [Concomitant]
     Indication: HYPERTENSION
     Route: 065

REACTIONS (2)
  - Thermal burn [Recovering/Resolving]
  - Off label use [Unknown]
